FAERS Safety Report 5213556-6 (Version None)
Quarter: 2007Q1

REPORT INFORMATION
  Report Type: 
  Country: None (occurrence: None)
  Receive Date: 20070119
  Receipt Date: 20070110
  Transmission Date: 20070707
  Serious: Yes (Congenital Anomaly)
  Sender: FDA-Public Use
  Company Number: US-ABBOTT-07P-163-0355435-00

PATIENT
  Sex: Female
  Weight: 68 kg

DRUGS (2)
  1. HUMIRA [Suspect]
     Indication: CROHN'S DISEASE
     Route: 058
     Dates: start: 20050524, end: 20060425
  2. COMMERCIAL HUMIRA [Concomitant]
     Indication: CROHN'S DISEASE

REACTIONS (1)
  - VENTRICULAR SEPTAL DEFECT [None]
